FAERS Safety Report 13572349 (Version 1)
Quarter: 2017Q2

REPORT INFORMATION
  Report Type: Spontaneous
  Country: US (occurrence: US)
  Receive Date: 20170523
  Receipt Date: 20170523
  Transmission Date: 20170830
  Serious: Yes (Hospitalization)
  Sender: FDA-Public Use
  Company Number: None

PATIENT
  Age: 54 Year
  Sex: Female
  Weight: 125 kg

DRUGS (12)
  1. NOVOLOG [Concomitant]
     Active Substance: INSULIN ASPART
  2. LISINOPRIL. [Concomitant]
     Active Substance: LISINOPRIL
  3. LEVOTHYROXINE. [Concomitant]
     Active Substance: LEVOTHYROXINE
  4. DOMPERIDONE [Suspect]
     Active Substance: DOMPERIDONE
     Indication: IMPAIRED GASTRIC EMPTYING
     Dosage: 10 MG 4 TIMES A DAY ORAL
     Route: 048
     Dates: start: 20170313, end: 20170517
  5. OMEPRAZOLE. [Concomitant]
     Active Substance: OMEPRAZOLE
  6. PROCHLORPERAZINE MALEATE. [Concomitant]
     Active Substance: PROCHLORPERAZINE MALEATE
  7. MELOXICAM. [Concomitant]
     Active Substance: MELOXICAM
  8. CRESTOR [Concomitant]
     Active Substance: ROSUVASTATIN CALCIUM
  9. BAYER CONTOUR NEXT TEST IN VITRO STRIP BAYER MICROLET LANCETS [Concomitant]
  10. PRESERVISION AREDS [Concomitant]
     Active Substance: MINERALS\VITAMINS
  11. ONDANSETRON HCI [Concomitant]
  12. PAROXETINE HCI [Concomitant]

REACTIONS (4)
  - Chest pain [None]
  - Hyperhidrosis [None]
  - Acute myocardial infarction [None]
  - Nausea [None]

NARRATIVE: CASE EVENT DATE: 20170517
